FAERS Safety Report 4346365-0 (Version None)
Quarter: 2004Q2

REPORT INFORMATION
  Report Type: 
  Country: None (occurrence: None)
  Receive Date: 20040426
  Receipt Date: 20040323
  Transmission Date: 20050107
  Serious: Yes (Other)
  Sender: FDA-Public Use
  Company Number: US-BRISTOL-MYERS SQUIBB COMPANY-12542825

PATIENT
  Age: 20 Month
  Sex: Male
  Weight: 10 kg

DRUGS (8)
  1. MAXIPIME [Suspect]
     Indication: PSEUDOMONAS INFECTION
     Dosage: 500 MG EVERY 24 HOURS 1/19-1/23/04, 500 MG EVERY 8 HOURS 2/3-2/4/04.
     Dates: start: 20040104, end: 20040204
  2. GENTAMICIN [Suspect]
     Dosage: INTERRUPTED 1/1/04 TO 1/6/04
     Dates: start: 20031228, end: 20040115
  3. CEFTRIAXONE [Concomitant]
     Dates: start: 20030128, end: 20040101
  4. CEFAZOLIN [Concomitant]
     Dates: start: 20040224, end: 20040225
  5. VANCOMYCIN [Concomitant]
     Dosage: 165 MG EVERY 6 HRS. 1/6-1/7/04, 150 MG 1/19/04, 150 MG EVERY 12 HRS. 1/20-1/21/04
     Dates: start: 20040104, end: 20040121
  6. LORAZEPAM [Concomitant]
  7. ALBUTEROL [Concomitant]
  8. FLOVENT [Concomitant]

REACTIONS (3)
  - NEUROTOXICITY [None]
  - RENAL FAILURE [None]
  - RENAL TUBULAR NECROSIS [None]
